FAERS Safety Report 8261068-8 (Version None)
Quarter: 2012Q2

REPORT INFORMATION
  Report Type: 
  Country: None (occurrence: None)
  Receive Date: 20120405
  Receipt Date: 20120330
  Transmission Date: 20120825
  Serious: Yes (Other)
  Sender: FDA-Public Use
  Company Number: PHHY2009CA19642

PATIENT
  Sex: Male

DRUGS (5)
  1. SANDOSTATIN LAR [Suspect]
     Indication: ACROMEGALY
     Dosage: 10 MG, QMO
     Route: 030
     Dates: start: 20071030
  2. SANDOSTATIN LAR [Suspect]
     Dosage: 10 MG, EVERY 4 WEEKS
     Route: 030
  3. SANDOSTATIN LAR [Suspect]
     Dosage: 20 MG, QMO
     Route: 030
  4. SANDOSTATIN LAR [Suspect]
     Dosage: 10 MG, EVERY 4 WEEKS
     Route: 030
  5. SANDOSTATIN LAR [Suspect]
     Dosage: 10 MG, QMO
     Route: 030

REACTIONS (11)
  - PAIN [None]
  - HEADACHE [None]
  - HIP FRACTURE [None]
  - FALL [None]
  - BLOOD GROWTH HORMONE INCREASED [None]
  - DIARRHOEA [None]
  - POSTOPERATIVE WOUND COMPLICATION [None]
  - BLOOD GLUCOSE INCREASED [None]
  - GASTROENTERITIS VIRAL [None]
  - DECREASED APPETITE [None]
  - NAUSEA [None]
